FAERS Safety Report 13219966 (Version 1)
Quarter: 2017Q1

REPORT INFORMATION
  Report Type: Spontaneous
  Country: GB (occurrence: GB)
  Receive Date: 20170210
  Receipt Date: 20170210
  Transmission Date: 20170428
  Serious: Yes (Death)
  Sender: FDA-Public Use
  Company Number: GB-CIPLA LTD.-2017GB01596

PATIENT

DRUGS (2)
  1. OXALIPLATIN. [Suspect]
     Active Substance: OXALIPLATIN
     Indication: LYMPHOMA
     Dosage: 100 MG/M2, ON DAY 1 AND REPEATED EVERY 15 DAYS
     Route: 065
  2. GEMCITABINE [Suspect]
     Active Substance: GEMCITABINE\GEMCITABINE HYDROCHLORIDE
     Indication: LYMPHOMA
     Dosage: 1000 MG/M2, ON DAY 1 AND REPEATED EVERY 15 DAYS
     Route: 065

REACTIONS (1)
  - Lymphoma [Fatal]
